FAERS Safety Report 18978190 (Version 1)
Quarter: 2021Q1

REPORT INFORMATION
  Report Type: Not Available
  Country: US (occurrence: US)
  Receive Date: 20210307
  Receipt Date: 20210307
  Transmission Date: 20210420
  Serious: No
  Sender: FDA-Public Use
  Company Number: US-NEUROCRINE BIOSCIENCES INC.-2021NBI01035

PATIENT
  Age: 68 Year
  Sex: Female

DRUGS (6)
  1. ONGENTYS [Suspect]
     Active Substance: OPICAPONE
     Indication: PARKINSON^S DISEASE
     Dosage: EVERY NIGHT AT BEDTIME
     Route: 048
     Dates: start: 202101
  2. VENLAFAXINE [Concomitant]
     Active Substance: VENLAFAXINE HYDROCHLORIDE
  3. SINEMET CR [Concomitant]
     Active Substance: CARBIDOPA\LEVODOPA
  4. SIMVASTATIN. [Concomitant]
     Active Substance: SIMVASTATIN
  5. PRAMIPEXOLE. [Concomitant]
     Active Substance: PRAMIPEXOLE
  6. OMEPRAZOLE. [Concomitant]
     Active Substance: OMEPRAZOLE

REACTIONS (1)
  - Dysphagia [Unknown]

NARRATIVE: CASE EVENT DATE: 2021
